FAERS Safety Report 15937318 (Version 7)
Quarter: 2022Q1

REPORT INFORMATION
  Report Type: Spontaneous
  Country: FR (occurrence: FR)
  Receive Date: 20190208
  Receipt Date: 20220311
  Transmission Date: 20220423
  Serious: Yes (Death, Other)
  Sender: FDA-Public Use
  Company Number: None

PATIENT
  Age: 80 Year
  Sex: Male
  Weight: 100 kg

DRUGS (22)
  1. AMLODIPINE BESYLATE [Suspect]
     Active Substance: AMLODIPINE BESYLATE
     Indication: Hypertension
     Dosage: 5 MILLIGRAM, ONCE A DAY (QD)
     Route: 048
  2. AMLODIPINE BESYLATE [Suspect]
     Active Substance: AMLODIPINE BESYLATE
     Dosage: 5 UNK
     Route: 048
  3. DUTASTERIDE [Suspect]
     Active Substance: DUTASTERIDE
     Indication: Benign prostatic hyperplasia
     Dosage: 0.5 MILLIGRAM, ONCE A DAY
     Route: 048
  4. DUTASTERIDE [Suspect]
     Active Substance: DUTASTERIDE
     Dosage: 0.5 MILLIGRAM, EVERY OTHER DAY
     Route: 048
  5. ROSUVASTATIN CALCIUM [Suspect]
     Active Substance: ROSUVASTATIN CALCIUM
     Indication: Hypercholesterolaemia
     Dosage: 5 MILLIGRAM, ONCE A DAY (QD), DATE OF LAST ADMINISTRATION: 07-JAN-2019
     Route: 048
     Dates: end: 20190107
  6. ROSUVASTATIN CALCIUM [Suspect]
     Active Substance: ROSUVASTATIN CALCIUM
     Dosage: 5 MILLIGRAM, EVERY OTHER DAY
     Route: 048
  7. HYDROCHLOROTHIAZIDE\TELMISARTAN [Suspect]
     Active Substance: HYDROCHLOROTHIAZIDE\TELMISARTAN
     Indication: Hypertension
     Dosage: 1 DOSAGE FORM, ONCE A DAY
     Route: 048
  8. ACETAMINOPHEN [Suspect]
     Active Substance: ACETAMINOPHEN
     Indication: Pain
     Dosage: UNK
     Route: 048
  9. SOLIFENACIN [Suspect]
     Active Substance: SOLIFENACIN
     Indication: Urinary incontinence
     Dosage: 5 MILLIGRAM, EVERY OTHER DAY
     Route: 048
  10. ALFUZOSIN HYDROCHLORIDE [Suspect]
     Active Substance: ALFUZOSIN HYDROCHLORIDE
     Indication: Benign prostatic hyperplasia
     Dosage: 10 MILLIGRAM, ONCE A DAY (QD)
     Route: 048
  11. DAFALGAN [Suspect]
     Active Substance: ACETAMINOPHEN
     Indication: Pain
     Dosage: PRN (DAFALGAN), AS NECESSARY
     Route: 048
  12. VILDAGLIPTIN [Suspect]
     Active Substance: VILDAGLIPTIN
     Indication: Type 2 diabetes mellitus
     Dosage: 100 MILLIGRAM, DAILY (QD, GALVUS 50 MGTABLET)
     Route: 048
  13. KARDEGIC [Suspect]
     Active Substance: ASPIRIN DL-LYSINE
     Indication: Prophylaxis
     Dosage: 75 MILLIGRAM, ONCE A DAY (QD) (KARDEGIC)
     Route: 048
  14. KARDEGIC [Suspect]
     Active Substance: ASPIRIN DL-LYSINE
     Dosage: 75 MILLIGRAM EVERY 2 WEEKS
     Route: 048
  15. LEVOTHYROXINE SODIUM [Suspect]
     Active Substance: LEVOTHYROXINE SODIUM
     Indication: Hypothyroidism
     Dosage: 1 DOSAGE FORM, ONCE A DAY, DIVISIBLE TABLETS
     Route: 048
  16. MOVICOL [Suspect]
     Active Substance: POLYETHYLENE GLYCOL 3350\POTASSIUM CHLORIDE\SODIUM BICARBONATE\SODIUM CHLORIDE
     Indication: Constipation
     Dosage: 1 DOSAGE FORM, ONCE A DAY, (1 DF=1 T DRUG INTERVAL 1 DAY)
     Route: 048
  17. HERBALS\SAW PALMETTO [Suspect]
     Active Substance: HERBALS\SAW PALMETTO
     Indication: Benign prostatic hyperplasia
     Dosage: 320 MILLIGRAM, ONCE A DAY (QD)
     Route: 048
  18. HERBALS\SAW PALMETTO [Suspect]
     Active Substance: HERBALS\SAW PALMETTO
     Dosage: 320 MILLIGRAM, ONCE A DAY (QD)
     Route: 048
  19. QUESTRAN [Suspect]
     Active Substance: CHOLESTYRAMINE
     Indication: Pruritus
     Dosage: 1 DOSAGE FORM, DAILY, (1 DF, 1DF=3T DRUG INTREVAL 1DAY)
     Route: 048
     Dates: start: 20181217, end: 20181231
  20. QUESTRAN [Suspect]
     Active Substance: CHOLESTYRAMINE
     Dosage: 3 DOSAGE FORM, DAILY (QD)
     Route: 048
     Dates: start: 20181217, end: 20181231
  21. VESICARE [Suspect]
     Active Substance: SOLIFENACIN SUCCINATE
     Indication: Urinary incontinence
     Dosage: 5 MILLIGRAM, ONCE A DAY (VESICARE 5 MG, FILM COATED TABLET)
     Route: 048
  22. VILDAGLIPTIN [Suspect]
     Active Substance: VILDAGLIPTIN
     Indication: Type 2 diabetes mellitus
     Dosage: 100 MILLIGRAM, EVERY OTHER DAY
     Route: 048

REACTIONS (1)
  - Liver function test abnormal [Fatal]

NARRATIVE: CASE EVENT DATE: 20181217
